FAERS Safety Report 12311055 (Version 1)
Quarter: 2016Q2

REPORT INFORMATION
  Report Type: Spontaneous
  Country: US (occurrence: US)
  Receive Date: 20160427
  Receipt Date: 20160427
  Transmission Date: 20160815
  Serious: No
  Sender: FDA-Public Use
  Company Number: US-BAUSCH-BL-2016-001393

PATIENT
  Age: 74 Year
  Sex: Male
  Weight: 86.26 kg

DRUGS (3)
  1. PROLENSA [Suspect]
     Active Substance: BROMFENAC SODIUM
     Indication: CATARACT OPERATION
     Route: 047
     Dates: start: 201512
  2. LOTEMAX GEL [Concomitant]
     Indication: CATARACT OPERATION
     Route: 047
     Dates: start: 201601
  3. COUMADIN [Concomitant]
     Active Substance: WARFARIN SODIUM
     Indication: THROMBOSIS
     Route: 048

REACTIONS (1)
  - Eye burns [Recovered/Resolved]
